FAERS Safety Report 12598831 (Version 1)
Quarter: 2016Q3

REPORT INFORMATION
  Report Type: Spontaneous
  Country: DE (occurrence: DE)
  Receive Date: 20160726
  Receipt Date: 20160726
  Transmission Date: 20161109
  Serious: Yes (Other)
  Sender: FDA-Public Use
  Company Number: DE-MYLANLABS-2015M1046886

PATIENT

DRUGS (4)
  1. AMIODARONE [Suspect]
     Active Substance: AMIODARONE
     Dosage: 100 MG, QD
  2. SOOLANTRA [Interacting]
     Active Substance: IVERMECTIN
     Indication: ROSACEA
     Dosage: UNK (1X TGL)
     Route: 062
     Dates: start: 20151015
  3. PREDNISOLON                        /00016201/ [Concomitant]
     Active Substance: PREDNISOLONE
     Dosage: 8 MG, QD
  4. PHENPROCOUMON [Concomitant]
     Active Substance: PHENPROCOUMON
     Dosage: UNK

REACTIONS (4)
  - Arrhythmia [Unknown]
  - Drug interaction [Unknown]
  - Extrasystoles [Unknown]
  - Bradycardia [Unknown]

NARRATIVE: CASE EVENT DATE: 20151114
